FAERS Safety Report 19732281 (Version 1)
Quarter: 2021Q3

REPORT INFORMATION
  Report Type: Spontaneous
  Country: CZ (occurrence: CZ)
  Receive Date: 20210820
  Receipt Date: 20210820
  Transmission Date: 20211014
  Serious: Yes (Hospitalization, Other)
  Sender: FDA-Public Use
  Company Number: CZ-BAXTER-2021BAX025622

PATIENT
  Age: 51 Year
  Sex: Female

DRUGS (1)
  1. FYZIOLOGICKY ROZTOK VIAFLO [Suspect]
     Active Substance: SODIUM CHLORIDE
     Indication: CATHETER MANAGEMENT
     Route: 065
     Dates: start: 20210520

REACTIONS (1)
  - Burkholderia cepacia complex sepsis [Recovered/Resolved]
